FAERS Safety Report 7457535-7 (Version None)
Quarter: 2011Q1

REPORT INFORMATION
  Report Type: 
  Country: None (occurrence: None)
  Receive Date: 20110302
  Receipt Date: 20101220
  Transmission Date: 20110831
  Serious: Yes (Death)
  Sender: FDA-Public Use
  Company Number: 163-21880-10112130

PATIENT
  Sex: Female

DRUGS (33)
  1. VENTOLIN HFA (SALBUTAMOL SULFATE) [Concomitant]
  2. KLOR-CON [Concomitant]
  3. PREMARIN [Concomitant]
  4. SINGULAIR [Concomitant]
  5. INDERAL [Concomitant]
  6. REVLIMID [Suspect]
     Indication: MULTIPLE MYELOMA
     Dosage: 25 MG, DAILY X 21 DAYS, PO
     Route: 048
     Dates: start: 20100824, end: 20101116
  7. ACETAMINOPHEN [Concomitant]
  8. BISACODYL (BISACODYL) [Concomitant]
  9. LORAZEPAM [Concomitant]
  10. TEARS RENEWAL (TEARS RENEWED) [Concomitant]
  11. LASIX [Concomitant]
  12. REQUIP [Concomitant]
  13. ALLEGRA [Concomitant]
  14. MULTIVITAMIN [Concomitant]
  15. DEBROX (UREA HYDROGEN PEROXIDE) [Concomitant]
  16. PRILOSEC [Concomitant]
  17. MILK OF MAGNESIA TAB [Concomitant]
  18. DIVALPROEX SODIUM [Concomitant]
  19. DOCUSATE SODIUM (DOCUSATE SODIUM) [Concomitant]
  20. GEODON [Concomitant]
  21. VICODIN [Concomitant]
  22. FOSAMAX [Concomitant]
  23. CRANBERRY FRUIT (ALL OTHER THERAPEUTIC PRODUCTS) [Concomitant]
  24. EXELON [Concomitant]
  25. LUNESTA [Concomitant]
  26. MELOXICAM [Concomitant]
  27. DEXAMETHASONE [Concomitant]
  28. CALCITONIN (CALCITONIN) [Concomitant]
  29. MUCINEX DM (TUSSIN DM) [Concomitant]
  30. SPIRIVA [Concomitant]
  31. FENTANYL [Concomitant]
  32. LACTULOSE [Concomitant]
  33. PREDNISONE [Concomitant]

REACTIONS (2)
  - CHRONIC OBSTRUCTIVE PULMONARY DISEASE [None]
  - RESPIRATORY FAILURE [None]
